FAERS Safety Report 4620760-4 (Version None)
Quarter: 2005Q1

REPORT INFORMATION
  Report Type: 
  Country: None (occurrence: None)
  Receive Date: 20050325
  Receipt Date: 20050310
  Transmission Date: 20050727
  Serious: Yes (Hospitalization)
  Sender: FDA-Public Use
  Company Number: 2005BI002188

PATIENT
  Age: 47 Year
  Sex: Female
  Weight: 79.3795 kg

DRUGS (6)
  1. AVONEX [Suspect]
     Indication: MULTIPLE SCLEROSIS
     Dosage: QW; IM
     Route: 030
     Dates: start: 19930101, end: 20020101
  2. AVONEX [Suspect]
     Indication: MULTIPLE SCLEROSIS
     Dosage: 30 UG; QW; IM (SEE IMAGE)
     Route: 030
     Dates: start: 20020101, end: 20030701
  3. AVONEX [Suspect]
     Indication: MULTIPLE SCLEROSIS
     Dosage: 30 UG; QW; IM (SEE IMAGE)
     Route: 030
     Dates: start: 20030801
  4. AZITHROMYCIN [Concomitant]
  5. DOXYCYCLINE [Concomitant]
  6. DETROL [Concomitant]

REACTIONS (3)
  - ABASIA [None]
  - PHARYNGOLARYNGEAL PAIN [None]
  - PYREXIA [None]
